FAERS Safety Report 8812838 (Version 1)
Quarter: 2012Q4

REPORT INFORMATION
  Report Type: 
  Country: BR (occurrence: BR)
  Receive Date: 20120927
  Receipt Date: 20120927
  Transmission Date: 20130627
  Serious: Yes (Hospitalization)
  Sender: FDA-Public Use
  Company Number: BR-009507513-1209BRA011455

PATIENT
  Age: 67 Year
  Sex: Male

DRUGS (1)
  1. TIMOPTOL [Suspect]
     Indication: GLAUCOMA
     Dosage: UNK UNK, bid
     Route: 047
     Dates: start: 2005

REACTIONS (1)
  - Adverse event [Recovered/Resolved with Sequelae]
